FAERS Safety Report 25882512 (Version 1)
Quarter: 2025Q4

REPORT INFORMATION
  Report Type: Spontaneous
  Country: EU (occurrence: EU)
  Receive Date: 20251006
  Receipt Date: 20251006
  Transmission Date: 20260117
  Serious: Yes (Hospitalization)
  Sender: ACADIA PHARMACEUTICALS
  Company Number: EU-ACADIA PHARMACEUTICALS INC.-ACA-2025-TRF-010723

PATIENT

DRUGS (1)
  1. DAYBUE [Suspect]
     Active Substance: TROFINETIDE
     Indication: Rett syndrome
     Dosage: 10 MILLILITER, UNK
     Route: 065

REACTIONS (3)
  - Hypersensitivity [Unknown]
  - Vomiting [Unknown]
  - Underdose [Unknown]
